FAERS Safety Report 7805996-3 (Version None)
Quarter: 2011Q4

REPORT INFORMATION
  Report Type: 
  Country: None (occurrence: None)
  Receive Date: 20111011
  Receipt Date: 20110926
  Transmission Date: 20120403
  Serious: Yes (Other)
  Sender: FDA-Public Use
  Company Number: JP-JNJFOC-20110803471

PATIENT
  Sex: Female
  Weight: 47 kg

DRUGS (9)
  1. REMICADE [Suspect]
     Route: 042
     Dates: start: 20110614
  2. LANSOPRAZOLE [Concomitant]
     Indication: GASTRITIS
     Route: 048
     Dates: start: 20110426
  3. ASACOL [Concomitant]
     Indication: COLITIS ULCERATIVE
     Route: 048
     Dates: start: 20100727
  4. BIO-THREE [Concomitant]
     Indication: COLITIS ULCERATIVE
     Route: 048
  5. REMICADE [Suspect]
     Route: 042
     Dates: start: 20110531
  6. ONEALFA [Concomitant]
     Indication: OSTEOPOROSIS
     Dosage: 0.5 RG
     Route: 048
  7. REMICADE [Suspect]
     Indication: COLITIS ULCERATIVE
     Dosage: 3RD DOSE OF INFLIXIMAB
     Route: 042
     Dates: start: 20110712
  8. PREDNISOLONE [Suspect]
     Indication: COLITIS ULCERATIVE
     Route: 048
     Dates: start: 20100727
  9. IMURAN [Suspect]
     Indication: COLITIS ULCERATIVE
     Route: 048

REACTIONS (3)
  - LISTERIA ENCEPHALITIS [None]
  - LYMPHOCYTE COUNT DECREASED [None]
  - NEUTROPHIL COUNT INCREASED [None]
